FAERS Safety Report 4370301-4 (Version None)
Quarter: 2004Q2

REPORT INFORMATION
  Report Type: 
  Country: None (occurrence: None)
  Receive Date: 20040603
  Receipt Date: 20040305
  Transmission Date: 20050107
  Serious: No
  Sender: FDA-Public Use
  Company Number: US-BRISTOL-MYERS SQUIBB COMPANY-12525564

PATIENT
  Age: 61 Year
  Sex: Male

DRUGS (9)
  1. ABILIFY [Suspect]
     Indication: BIPOLAR DISORDER
     Dosage: REDUCED TO 7.5 MG/DAY (1/2 TABLET) ON 19-FEB-2004.
     Route: 048
     Dates: start: 20031007
  2. WELLBUTRIN SR [Concomitant]
  3. LEXAPRO [Concomitant]
  4. ACTOS [Concomitant]
  5. METFORMIN HCL [Concomitant]
  6. DIOVAN [Concomitant]
  7. NORVASC [Concomitant]
  8. NIACIN [Concomitant]
  9. ZOCOR [Concomitant]

REACTIONS (1)
  - PARKINSONIAN REST TREMOR [None]
